FAERS Safety Report 5483778-8 (Version None)
Quarter: 2007Q4

REPORT INFORMATION
  Report Type: 
  Country: None (occurrence: None)
  Receive Date: 20071012
  Receipt Date: 20071001
  Transmission Date: 20080405
  Serious: Yes (Hospitalization)
  Sender: FDA-Public Use
  Company Number: B0396233A

PATIENT
  Age: 41 Year
  Sex: Female

DRUGS (2)
  1. LAMOTRIGINE [Suspect]
     Indication: EPILEPSY
     Dosage: 100MG SEE DOSAGE TEXT
     Route: 048
  2. PHENOBARBITAL TAB [Concomitant]
     Indication: DRUG USE FOR UNKNOWN INDICATION
     Route: 065

REACTIONS (14)
  - ABORTION SPONTANEOUS [None]
  - ANTICONVULSANT DRUG LEVEL ABOVE THERAPEUTIC [None]
  - CONFUSIONAL STATE [None]
  - DEPRESSED LEVEL OF CONSCIOUSNESS [None]
  - DRUG EXPOSURE DURING PREGNANCY [None]
  - DRUG TOXICITY [None]
  - GRAND MAL CONVULSION [None]
  - HAEMATOMA [None]
  - HEADACHE [None]
  - INTENTIONAL OVERDOSE [None]
  - MOUTH INJURY [None]
  - SKIN LACERATION [None]
  - STATUS EPILEPTICUS [None]
  - SUICIDE ATTEMPT [None]
